FAERS Safety Report 21239160 (Version 1)
Quarter: 2022Q3

REPORT INFORMATION
  Report Type: Spontaneous
  Country: US (occurrence: None)
  Receive Date: 20220819
  Receipt Date: 20220819
  Transmission Date: 20221027
  Serious: Yes (Hospitalization)
  Sender: FDA-Public Use
  Company Number: None

PATIENT
  Age: 59 Year
  Sex: Male
  Weight: 66 kg

DRUGS (16)
  1. ENTRESTO [Suspect]
     Active Substance: SACUBITRIL\VALSARTAN
     Indication: Cardiac failure congestive
     Dosage: FREQUENCY : TWICE A DAY;?
     Route: 048
     Dates: start: 20211216, end: 20220816
  2. ALBUTEROL [Concomitant]
     Active Substance: ALBUTEROL
     Dates: start: 20210915
  3. DIGOXIN [Concomitant]
     Active Substance: DIGOXIN
     Dates: start: 20211118
  4. FARXIGA [Concomitant]
     Active Substance: DAPAGLIFLOZIN PROPANEDIOL
     Dates: start: 20220803
  5. FERROUS SULFATE [Concomitant]
     Active Substance: FERROUS SULFATE
     Dates: start: 20220117
  6. FUROSEMIDE [Concomitant]
     Active Substance: FUROSEMIDE
     Dates: start: 20211118
  7. GLIPIZIDE [Concomitant]
     Active Substance: GLIPIZIDE
     Dates: start: 20220708
  8. METOPROLOL [Concomitant]
     Active Substance: METOPROLOL
     Dates: start: 20211118
  9. MODAFINIL [Concomitant]
     Active Substance: MODAFINIL
     Dates: start: 20220415
  10. PRASUGREL [Concomitant]
     Active Substance: PRASUGREL
     Dates: start: 20211124
  11. ROSUVASTATIN [Concomitant]
     Active Substance: ROSUVASTATIN
     Dates: start: 20210719
  12. SPIRONOLACTONE [Concomitant]
     Active Substance: SPIRONOLACTONE
     Dates: start: 20211124
  13. SYMBICORT [Concomitant]
     Active Substance: BUDESONIDE\FORMOTEROL FUMARATE DIHYDRATE
     Dates: start: 20211118
  14. TRAZODONE [Concomitant]
     Active Substance: TRAZODONE HYDROCHLORIDE
     Dates: start: 20220726
  15. VITAMIN D [Concomitant]
     Active Substance: VITAMIN D NOS
     Dates: start: 20220708
  16. ZOLPIDEM [Concomitant]
     Active Substance: ZOLPIDEM TARTRATE
     Dates: start: 20220708

REACTIONS (2)
  - Hypotension [None]
  - Electrolyte imbalance [None]

NARRATIVE: CASE EVENT DATE: 20220816
